FAERS Safety Report 16810374 (Version 2)
Quarter: 2019Q3

REPORT INFORMATION
  Report Type: Spontaneous
  Country: US (occurrence: US)
  Receive Date: 20190916
  Receipt Date: 20190919
  Transmission Date: 20191005
  Serious: No
  Sender: FDA-Public Use
  Company Number: US-BAYER-2019-167766

PATIENT
  Age: 86 Year
  Sex: Female

DRUGS (3)
  1. SMOOTH MOVE [Concomitant]
     Dosage: UNK
  2. MIRALAX [Suspect]
     Active Substance: POLYETHYLENE GLYCOL 3350
     Indication: FAECALOMA
     Dosage: 17 G, QD
     Route: 065
     Dates: start: 20190815
  3. MIRALAX [Suspect]
     Active Substance: POLYETHYLENE GLYCOL 3350
     Indication: FAECALOMA
     Dosage: 34 G, QD

REACTIONS (9)
  - Drug ineffective [Unknown]
  - Back pain [Unknown]
  - Dehydration [Unknown]
  - Bone disorder [Unknown]
  - Thirst [Unknown]
  - Incorrect product administration duration [Unknown]
  - Musculoskeletal chest pain [Unknown]
  - Dry skin [Unknown]
  - Product use in unapproved indication [Unknown]

NARRATIVE: CASE EVENT DATE: 20190815
